FAERS Safety Report 15796136 (Version 2)
Quarter: 2019Q1

REPORT INFORMATION
  Report Type: Report from Study
  Country: None (occurrence: US)
  Receive Date: 20190108
  Receipt Date: 20190127
  Transmission Date: 20190417
  Serious: Yes (Other)
  Sender: FDA-Public Use
  Company Number: US-ABBVIE-19K-163-2613793-00

PATIENT
  Sex: Female

DRUGS (2)
  1. HUMIRA [Suspect]
     Active Substance: ADALIMUMAB
     Indication: RHEUMATOID ARTHRITIS
     Dosage: HUMIRA CF PEN
     Route: 058
     Dates: start: 20181116
  2. HUMIRA [Suspect]
     Active Substance: ADALIMUMAB
     Dosage: HUMIRA CF PEN
     Route: 058

REACTIONS (11)
  - Post procedural complication [Unknown]
  - Tendon disorder [Unknown]
  - Injection site nodule [Unknown]
  - Pain in extremity [Unknown]
  - Immunodeficiency [Not Recovered/Not Resolved]
  - Malaise [Not Recovered/Not Resolved]
  - Injection site bruising [Unknown]
  - Musculoskeletal stiffness [Unknown]
  - Epicondylitis [Unknown]
  - Arthralgia [Unknown]
  - Musculoskeletal pain [Unknown]
